FAERS Safety Report 9795372 (Version 2)
Quarter: 2014Q2

REPORT INFORMATION
  Report Type: Other
  Country: US (occurrence: US)
  Receive Date: 20140103
  Receipt Date: 20140403
  Transmission Date: 20141212
  Serious: Yes (Disabling)
  Sender: FDA-Public Use
  Company Number: US-SHIRE-ALL1-2013-09007

PATIENT
  Sex: Female

DRUGS (2)
  1. VYVANSE [Suspect]
     Indication: PRODUCT USED FOR UNKNOWN INDICATION
     Dosage: 70 MG, 1X/DAY:QD (IN THE MORNING)
     Route: 048
  2. SYMBYAX [Suspect]
     Indication: PRODUCT USED FOR UNKNOWN INDICATION
     Dosage: UNK (6MG/50MG), 1X/DAY:QD (AT NIGHT)
     Route: 065
     Dates: end: 201403

REACTIONS (3)
  - Hypersomnia [Recovering/Resolving]
  - Foot fracture [Recovered/Resolved]
  - Blood pressure increased [Recovering/Resolving]
